FAERS Safety Report 25768109 (Version 1)
Quarter: 2025Q3

REPORT INFORMATION
  Report Type: Spontaneous
  Country: US (occurrence: US)
  Receive Date: 20250905
  Receipt Date: 20250905
  Transmission Date: 20251020
  Serious: No
  Sender: DOMPE FARMACEUTICI
  Company Number: US-FARMAPROD-202505-1773

PATIENT
  Sex: Female

DRUGS (15)
  1. OXERVATE [Suspect]
     Active Substance: CENEGERMIN-BKBJ
     Indication: Neurotrophic keratopathy
     Route: 047
     Dates: start: 20250507
  2. OXERVATE [Suspect]
     Active Substance: CENEGERMIN-BKBJ
  3. VITAMIN C [Concomitant]
     Active Substance: ASCORBIC ACID
  4. DIETARY SUPPLEMENT\HERBALS\MILK THISTLE [Concomitant]
     Active Substance: MILK THISTLE
  5. PROBIOTIC IMMUNE 1B [ BIFIDOBACTERIUM BIFIDUM;BIFIDOBACTERIUM LACTIS;B [Concomitant]
  6. WOMEN^S 50 PLUS ADVANCED [Concomitant]
  7. HYDROCHLOROTHIAZIDE\LOSARTAN [Concomitant]
     Active Substance: HYDROCHLOROTHIAZIDE\LOSARTAN
  8. DORZOLAMIDE AND TIMOLOL [Concomitant]
     Active Substance: DORZOLAMIDE HYDROCHLORIDE\TIMOLOL MALEATE
  9. GATIFLOXACIN [Concomitant]
     Active Substance: GATIFLOXACIN
  10. RESTASIS [Concomitant]
     Active Substance: CYCLOSPORINE
  11. DUREZOL [Concomitant]
     Active Substance: DIFLUPREDNATE
  12. BUSPIRONE HCL [Concomitant]
     Active Substance: BUSPIRONE HYDROCHLORIDE
  13. VALACYCLOVIR [Concomitant]
     Active Substance: VALACYCLOVIR HYDROCHLORIDE
  14. ESCITALOPRAM OXALATE [Concomitant]
     Active Substance: ESCITALOPRAM OXALATE
  15. ATORVASTATIN CALCIUM [Concomitant]
     Active Substance: ATORVASTATIN CALCIUM

REACTIONS (5)
  - Eye pain [Unknown]
  - Eye irritation [Unknown]
  - Eye swelling [Unknown]
  - Ocular hyperaemia [Unknown]
  - Skin burning sensation [Unknown]
